FAERS Safety Report 7934013-X (Version None)
Quarter: 2011Q4

REPORT INFORMATION
  Report Type: 
  Country: None (occurrence: None)
  Receive Date: 20111116
  Receipt Date: 20111108
  Transmission Date: 20120403
  Serious: Yes (Other)
  Sender: FDA-Public Use
  Company Number: 2011SP052613

PATIENT
  Age: 31 Year
  Sex: Female
  Weight: 94.8018 kg

DRUGS (2)
  1. IMPLANON [Suspect]
     Indication: CONTRACEPTION
     Dosage: 1 DF;SBDE
     Dates: end: 20110630
  2. IMPLANON [Suspect]
     Indication: CONTRACEPTION
     Dosage: 1 DF;SBDE
     Dates: start: 20110630

REACTIONS (2)
  - CONVULSION [None]
  - SMEAR CERVIX ABNORMAL [None]
